FAERS Safety Report 5726956-2 (Version None)
Quarter: 2008Q2

REPORT INFORMATION
  Report Type: 
  Country: None (occurrence: None)
  Receive Date: 20080502
  Receipt Date: 20080422
  Transmission Date: 20081010
  Serious: Yes (Life-Threatening)
  Sender: FDA-Public Use
  Company Number: US-PFIZER INC-2007077453

PATIENT
  Sex: Female
  Weight: 86.2 kg

DRUGS (6)
  1. ZIPRASIDONE (CAPS) [Suspect]
     Indication: BIPOLAR I DISORDER
     Route: 048
     Dates: start: 20070709, end: 20070910
  2. LAMICTAL [Concomitant]
     Route: 048
  3. CELEXA [Concomitant]
     Route: 048
  4. COGENTIN [Concomitant]
     Route: 048
  5. ABILIFY [Concomitant]
     Route: 048
  6. ATENOLOL [Concomitant]
     Route: 048

REACTIONS (1)
  - LOSS OF CONSCIOUSNESS [None]
